FAERS Safety Report 8875331 (Version 1)
Quarter: 2012Q4

REPORT INFORMATION
  Report Type: 
  Country: US (occurrence: US)
  Receive Date: 20121023
  Receipt Date: 20121023
  Transmission Date: 20130627
  Serious: Yes (Hospitalization, Other)
  Sender: FDA-Public Use
  Company Number: US-ROXANE LABORATORIES, INC.-2012-RO-02040RO

PATIENT
  Age: 80 Year
  Sex: Male

DRUGS (4)
  1. MYCOPHENOLATE MOFETIL [Suspect]
     Indication: MYASTHENIA GRAVIS
     Dosage: 1500 mg
  2. PREDNISONE [Suspect]
     Indication: MYASTHENIA GRAVIS
     Dosage: 10 mg
  3. AZATHIOPRINE [Suspect]
     Indication: MYASTHENIA GRAVIS
  4. PYRIDOSTIGMINE [Suspect]
     Indication: MYASTHENIA GRAVIS
     Dosage: 240 mg

REACTIONS (3)
  - Epstein-Barr virus infection [Recovered/Resolved with Sequelae]
  - Liver function test abnormal [Unknown]
  - Infection [Unknown]
